FAERS Safety Report 6197330-2 (Version None)
Quarter: 2009Q2

REPORT INFORMATION
  Report Type: 
  Country: None (occurrence: None)
  Receive Date: 20090521
  Receipt Date: 20090420
  Transmission Date: 20091009
  Serious: No
  Sender: FDA-Public Use
  Company Number: US-BAYER-200918500NA

PATIENT
  Age: 55 Year
  Sex: Female

DRUGS (8)
  1. AVELOX [Suspect]
     Indication: NASAL POLYPS
     Dosage: TOTAL DAILY DOSE: 400 MG  UNIT DOSE: 400 MG
     Dates: start: 20090410, end: 20090414
  2. TOPAMAX [Concomitant]
  3. CYMBALTA [Concomitant]
  4. LIPITOR [Concomitant]
  5. TRAZODONE HCL [Concomitant]
  6. SYNTHROID [Concomitant]
  7. TOPROL-XL [Concomitant]
  8. NASONEX [Concomitant]

REACTIONS (3)
  - ABNORMAL SENSATION IN EYE [None]
  - ASTHENOPIA [None]
  - EYE PAIN [None]
